FAERS Safety Report 21854098 (Version 1)
Quarter: 2023Q1

REPORT INFORMATION
  Report Type: Report from Study
  Country: BR (occurrence: BR)
  Receive Date: 20230112
  Receipt Date: 20230112
  Transmission Date: 20230418
  Serious: Yes (Other)
  Sender: FDA-Public Use
  Company Number: BR-JNJFOC-20220608919

PATIENT
  Age: 5 Decade
  Sex: Female
  Weight: 73 kg

DRUGS (6)
  1. REMICADE [Suspect]
     Active Substance: INFLIXIMAB
     Indication: Colitis ulcerative
     Dosage: END OF 2021
     Route: 041
     Dates: start: 2021
  2. REMICADE [Suspect]
     Active Substance: INFLIXIMAB
     Dosage: 10MG/ML + 5MG/KG
     Route: 041
     Dates: start: 2021
  3. REMICADE [Suspect]
     Active Substance: INFLIXIMAB
     Dosage: END OF 2020
     Route: 041
     Dates: start: 2020
  4. REMICADE [Suspect]
     Active Substance: INFLIXIMAB
     Route: 041
     Dates: start: 20210730
  5. INFLIXIMAB [Suspect]
     Active Substance: INFLIXIMAB
     Indication: Colitis ulcerative
     Route: 065
  6. AZATHIOPRINE [Concomitant]
     Active Substance: AZATHIOPRINE
     Indication: Crohn^s disease
     Dosage: 2CP, 500MG
     Route: 065

REACTIONS (8)
  - Intestinal fistula [Unknown]
  - Colitis ulcerative [Unknown]
  - Oedema peripheral [Recovering/Resolving]
  - Pustule [Unknown]
  - Candida infection [Unknown]
  - Wound [Not Recovered/Not Resolved]
  - Skin fissures [Unknown]
  - Therapeutic response decreased [Unknown]

NARRATIVE: CASE EVENT DATE: 20210101
